FAERS Safety Report 5679280-0 (Version None)
Quarter: 2008Q1

REPORT INFORMATION
  Report Type: 
  Country: None (occurrence: None)
  Receive Date: 20080325
  Receipt Date: 20080319
  Transmission Date: 20080703
  Serious: Yes (Hospitalization)
  Sender: FDA-Public Use
  Company Number: A0586157A

PATIENT
  Age: 53 Year
  Sex: Female

DRUGS (4)
  1. TOSITUMOMAB [Suspect]
     Indication: NON-HODGKIN'S LYMPHOMA
     Dosage: 450MG SINGLE DOSE
     Route: 042
     Dates: start: 20010627, end: 20010627
  2. IODINE I 131 TOSITUMOMAB [Suspect]
     Indication: NON-HODGKIN'S LYMPHOMA
     Dosage: 4.87MCI SINGLE DOSE
     Route: 042
     Dates: start: 20010627, end: 20010627
  3. TOSITUMOMAB [Suspect]
     Dosage: 450MG SINGLE DOSE
     Route: 042
     Dates: start: 20010712, end: 20010712
  4. IODINE I 131 TOSITUMOMAB [Suspect]
     Dosage: 93.6MCI SINGLE DOSE
     Route: 042
     Dates: start: 20010712, end: 20010712

REACTIONS (3)
  - CARDIOMYOPATHY [None]
  - CHEST PAIN [None]
  - DYSPNOEA [None]
